FAERS Safety Report 5673774-X (Version None)
Quarter: 2008Q1

REPORT INFORMATION
  Report Type: 
  Country: None (occurrence: None)
  Receive Date: 20080319
  Receipt Date: 20080307
  Transmission Date: 20080703
  Serious: Yes (Death, Life-Threatening)
  Sender: FDA-Public Use
  Company Number: AU-PFIZER INC-2008021825

PATIENT
  Sex: Female

DRUGS (8)
  1. SU-011,248 [Suspect]
     Indication: RENAL CELL CARCINOMA
     Route: 048
     Dates: start: 20080218, end: 20080303
  2. I124-CG250 [Suspect]
     Indication: RENAL CELL CARCINOMA
     Route: 042
     Dates: start: 20080211, end: 20080211
  3. CG250 [Suspect]
     Indication: RENAL CELL CARCINOMA
     Route: 042
     Dates: start: 20080218, end: 20080303
  4. ATENOLOL [Concomitant]
     Route: 048
  5. CITALOPRAM HYDROBROMIDE [Concomitant]
     Route: 048
  6. INDAPAMIDE [Concomitant]
     Route: 048
  7. METFORMIN HCL [Concomitant]
  8. SIMVASTATIN [Concomitant]
     Route: 048

REACTIONS (1)
  - CARDIOMYOPATHY ACUTE [None]
